FAERS Safety Report 9057238 (Version 22)
Quarter: 2015Q4

REPORT INFORMATION
  Report Type: Spontaneous
  Country: US (occurrence: US)
  Receive Date: 20130131
  Receipt Date: 20151006
  Transmission Date: 20160305
  Serious: Yes (Death, Hospitalization, Other)
  Sender: FDA-Public Use
  Company Number: US-GLAXOSMITHKLINE-A1010139A

PATIENT
  Age: 42 Year
  Sex: Female

DRUGS (16)
  1. FLOLAN [Suspect]
     Active Substance: EPOPROSTENOL SODIUM
     Dosage: 94 NG/KG/MIN CONTINUOUS
     Route: 042
  2. FLOLAN [Suspect]
     Active Substance: EPOPROSTENOL SODIUM
     Indication: PULMONARY ARTERIAL HYPERTENSION
     Dosage: CONTINUOUSINITIAL DOSE WAS 71 NG/KG/MINUTE, CURRENTLY 1.5 VIAL STRENGTH, UNKNOWN CONCENTRATION [...]
     Route: 042
     Dates: start: 19990406
  3. FLOLAN [Suspect]
     Active Substance: EPOPROSTENOL SODIUM
     Dosage: UNK
     Dates: start: 19990406
  4. FLOLAN [Suspect]
     Active Substance: EPOPROSTENOL SODIUM
     Dosage: 98 NG/KG/MIN/CONC 120,000 NG/ML/PUMP RATE 94 ML/DAY/VIAL STRENGTH 1.5 MG
     Route: 042
  5. FLOLAN [Suspect]
     Active Substance: EPOPROSTENOL SODIUM
     Dosage: 94 NG/KG/MIN, CO
     Route: 042
  6. FLOLAN [Suspect]
     Active Substance: EPOPROSTENOL SODIUM
     Dosage: UNK
     Dates: start: 19990406
  7. FLOLAN [Suspect]
     Active Substance: EPOPROSTENOL SODIUM
     Dosage: UNK
     Dates: start: 19990406
  8. PHEN-FEN [Concomitant]
  9. COUMADIN [Concomitant]
     Active Substance: WARFARIN SODIUM
  10. FLOLAN [Suspect]
     Active Substance: EPOPROSTENOL SODIUM
     Dosage: UNK
     Dates: start: 19990406
  11. FLOLAN [Suspect]
     Active Substance: EPOPROSTENOL SODIUM
     Dosage: UNK
     Dates: start: 19990406
  12. REVATIO [Concomitant]
     Active Substance: SILDENAFIL CITRATE
  13. FLOLAN [Suspect]
     Active Substance: EPOPROSTENOL SODIUM
     Dosage: UNK
     Dates: start: 19990406
  14. FLOLAN [Suspect]
     Active Substance: EPOPROSTENOL SODIUM
     Dosage: UNK
     Dates: start: 19990406
  15. FLOLAN [Suspect]
     Active Substance: EPOPROSTENOL SODIUM
     Dosage: UNK
     Dates: start: 19990406
  16. FLOLAN [Suspect]
     Active Substance: EPOPROSTENOL SODIUM
     Dosage: 94 NG/KG/MIN (CONCENTRATION 120,000 NG/ML, PUMP RATE 91 ML/DAY, VIAL STRENGTH 1.5 MG), CO
     Route: 042

REACTIONS (13)
  - Central venous catheterisation [Recovered/Resolved]
  - Hospitalisation [Unknown]
  - Pneumonia [Unknown]
  - Medical device removal [Recovered/Resolved]
  - Enterococcal infection [Unknown]
  - Diarrhoea [Recovered/Resolved]
  - Fluid retention [Unknown]
  - Clostridium difficile infection [Unknown]
  - Cardiac failure congestive [Unknown]
  - Drain placement [Unknown]
  - Waist circumference increased [Unknown]
  - Respiratory tract infection [Recovered/Resolved]
  - Death [Fatal]

NARRATIVE: CASE EVENT DATE: 20140117
